FAERS Safety Report 13447373 (Version 1)
Quarter: 2017Q2

REPORT INFORMATION
  Report Type: Spontaneous
  Country: US (occurrence: US)
  Receive Date: 20170416
  Receipt Date: 20170416
  Transmission Date: 20170830
  Serious: No
  Sender: FDA-Public Use
  Company Number: None

PATIENT
  Age: 14 Year
  Sex: Male
  Weight: 48.6 kg

DRUGS (1)
  1. RISPERIDONE. [Suspect]
     Active Substance: RISPERIDONE
     Indication: DEPRESSION
     Dosage: ?          QUANTITY:1 TABLET(S);?
     Route: 048
     Dates: start: 20170320, end: 20170414

REACTIONS (6)
  - Muscle twitching [None]
  - Irritability [None]
  - Mood altered [None]
  - Hallucination [None]
  - Confusional state [None]
  - Dizziness [None]

NARRATIVE: CASE EVENT DATE: 20170415
